FAERS Safety Report 6169851-X (Version None)
Quarter: 2009Q2

REPORT INFORMATION
  Report Type: 
  Country: None (occurrence: None)
  Receive Date: 20090428
  Receipt Date: 20090420
  Transmission Date: 20091009
  Serious: Yes (Life-Threatening)
  Sender: FDA-Public Use
  Company Number: JP-BAYER-200910964BYL

PATIENT
  Age: 32 Year
  Sex: Male
  Weight: 92 kg

DRUGS (3)
  1. AVELOX [Suspect]
     Indication: CHRONIC TONSILLITIS
     Dosage: TOTAL DAILY DOSE: 400 MG  UNIT DOSE: 400 MG
     Route: 048
     Dates: start: 20090327, end: 20090327
  2. TRANSAMIN [Suspect]
     Indication: CHRONIC TONSILLITIS
     Dosage: TOTAL DAILY DOSE: 750 MG  UNIT DOSE: 250 MG
     Route: 048
     Dates: start: 20090327, end: 20090327
  3. MUCOSOLVAN [Suspect]
     Indication: BRONCHITIS
     Dosage: TOTAL DAILY DOSE: 45 MG  UNIT DOSE: 15 MG
     Route: 048
     Dates: start: 20090327, end: 20090327

REACTIONS (8)
  - ANAPHYLACTIC SHOCK [None]
  - BLOOD PRESSURE DECREASED [None]
  - COLD SWEAT [None]
  - DYSPNOEA [None]
  - FEELING ABNORMAL [None]
  - SHOCK [None]
  - SOMNOLENCE [None]
  - URTICARIA [None]
